FAERS Safety Report 12293212 (Version 5)
Quarter: 2018Q2

REPORT INFORMATION
  Report Type: Report from Study
  Country: US (occurrence: US)
  Receive Date: 20160421
  Receipt Date: 20180531
  Transmission Date: 20180711
  Serious: Yes (Death, Hospitalization)
  Sender: FDA-Public Use
  Company Number: US-ACTELION-A-NJ2016-134779

PATIENT
  Age: 42 Year
  Sex: Male
  Weight: 74.83 kg

DRUGS (2)
  1. ADCIRCA [Concomitant]
     Active Substance: TADALAFIL
  2. VELETRI [Suspect]
     Active Substance: EPOPROSTENOL
     Indication: PULMONARY ARTERIAL HYPERTENSION
     Dosage: 15 NG/KG, PER MIN
     Route: 042
     Dates: start: 20150210

REACTIONS (9)
  - Kidney infection [Unknown]
  - Wheezing [Unknown]
  - Myocardial necrosis marker increased [Unknown]
  - Unevaluable event [Unknown]
  - Chest pain [Unknown]
  - Urinary tract infection [Unknown]
  - Death [Fatal]
  - Oxygen saturation decreased [Unknown]
  - Sleep apnoea syndrome [Unknown]

NARRATIVE: CASE EVENT DATE: 201603
